APPROVED DRUG PRODUCT: CICLOPIROX
Active Ingredient: CICLOPIROX
Strength: 0.77%
Dosage Form/Route: CREAM;TOPICAL
Application: A076790 | Product #001 | TE Code: AB
Applicant: SUN PHARMA CANADA INC
Approved: Apr 12, 2005 | RLD: No | RS: No | Type: RX